FAERS Safety Report 20771037 (Version 6)
Quarter: 2022Q2

REPORT INFORMATION
  Report Type: Spontaneous
  Country: FR (occurrence: FR)
  Receive Date: 20220429
  Receipt Date: 20220624
  Transmission Date: 20220721
  Serious: Yes (Death, Hospitalization)
  Sender: FDA-Public Use
  Company Number: FR-PFIZER INC-202200632822

PATIENT
  Age: 74 Year
  Sex: Male
  Weight: 58 kg

DRUGS (4)
  1. PAXLOVID [Suspect]
     Active Substance: NIRMATRELVIR\RITONAVIR
     Indication: COVID-19 treatment
     Dosage: [PF-07321332 150 MG]/[RITONAVIR 100 MG]; 2X/DAY
     Route: 048
     Dates: start: 20220401, end: 20220405
  2. BACTRIM [Concomitant]
     Active Substance: SULFAMETHOXAZOLE\TRIMETHOPRIM
     Dosage: UNK
  3. VALACYCLOVIR HYDROCHLORIDE [Concomitant]
     Active Substance: VALACYCLOVIR HYDROCHLORIDE
     Dosage: UNK
  4. IBRUTINIB [Concomitant]
     Active Substance: IBRUTINIB
     Dosage: UNK

REACTIONS (6)
  - Drug ineffective [Fatal]
  - COVID-19 [Fatal]
  - Septic shock [Fatal]
  - General physical health deterioration [Fatal]
  - Respiratory distress [Fatal]
  - Hypotension [Fatal]

NARRATIVE: CASE EVENT DATE: 20220401
